FAERS Safety Report 5218015-2 (Version None)
Quarter: 2007Q1

REPORT INFORMATION
  Report Type: 
  Country: None (occurrence: None)
  Receive Date: 20061130
  Receipt Date: 20060807
  Transmission Date: 20070707
  Serious: Yes (Hospitalization)
  Sender: FDA-Public Use
  Company Number: US200607001343

PATIENT
  Age: 54 Year
  Sex: Male
  Weight: 86.2 kg

DRUGS (3)
  1. ZYPREXA [Suspect]
     Dates: start: 20010101, end: 20060216
  2. PROZAC [Concomitant]
  3. GEODON [Concomitant]

REACTIONS (3)
  - CEREBROVASCULAR ACCIDENT [None]
  - CHEST PAIN [None]
  - DIABETES MELLITUS [None]
